FAERS Safety Report 13328266 (Version 1)
Quarter: 2017Q1

REPORT INFORMATION
  Report Type: Spontaneous
  Country: US (occurrence: US)
  Receive Date: 20170310
  Receipt Date: 20170310
  Transmission Date: 20170428
  Serious: Yes (Other)
  Sender: FDA-Public Use
  Company Number: None

PATIENT
  Age: 36 Year
  Sex: Female
  Weight: 58.5 kg

DRUGS (4)
  1. MAKENA [Suspect]
     Active Substance: HYDROXYPROGESTERONE CAPROATE
     Indication: PROPHYLAXIS
     Dosage: ?          OTHER FREQUENCY:WEEKLY;?
     Route: 030
     Dates: start: 20141210, end: 20150429
  2. PRENATAL VITAMIN [Concomitant]
     Active Substance: VITAMINS
  3. MAKENA [Suspect]
     Active Substance: HYDROXYPROGESTERONE CAPROATE
     Indication: PREMATURE DELIVERY
     Dosage: ?          OTHER FREQUENCY:WEEKLY;?
     Route: 030
     Dates: start: 20141210, end: 20150429
  4. LORATADINE. [Concomitant]
     Active Substance: LORATADINE

REACTIONS (8)
  - Headache [None]
  - Maternal exposure during pregnancy [None]
  - Maternal drugs affecting foetus [None]
  - Chills [None]
  - Pre-eclampsia [None]
  - Low birth weight baby [None]
  - Panic attack [None]
  - Hormone level abnormal [None]

NARRATIVE: CASE EVENT DATE: 20150630
